FAERS Safety Report 11634560 (Version 1)
Quarter: 2015Q4

REPORT INFORMATION
  Report Type: Report from Study
  Country: AU (occurrence: NZ)
  Receive Date: 20151015
  Receipt Date: 20151015
  Transmission Date: 20160304
  Serious: Yes (Other)
  Sender: FDA-Public Use
  Company Number: AU-REGENERON PHARMACEUTICALS, INC.-2015-13005

PATIENT

DRUGS (3)
  1. EYLEA [Suspect]
     Active Substance: AFLIBERCEPT
     Dosage: LOADING DOSE TREATMENT
     Dates: start: 20150901, end: 20150901
  2. EYLEA [Suspect]
     Active Substance: AFLIBERCEPT
     Dosage: LOADING DOSE TREATMENT
     Dates: start: 20150911, end: 20150911
  3. EYLEA [Suspect]
     Active Substance: AFLIBERCEPT
     Indication: PRODUCT USED FOR UNKNOWN INDICATION
     Dosage: LOADING DOSE TREATMENT
     Dates: start: 20150803, end: 20150803

REACTIONS (2)
  - Product use issue [Unknown]
  - Retinal degeneration [Unknown]

NARRATIVE: CASE EVENT DATE: 20150901
